FAERS Safety Report 19500081 (Version 2)
Quarter: 2021Q3

REPORT INFORMATION
  Report Type: Spontaneous
  Country: JP (occurrence: JP)
  Receive Date: 20210706
  Receipt Date: 20210902
  Transmission Date: 20211014
  Serious: Yes (Hospitalization, Other)
  Sender: FDA-Public Use
  Company Number: NVSC2021JP150964

PATIENT
  Age: 88 Year
  Sex: Female

DRUGS (2)
  1. RIVASTACH [Suspect]
     Active Substance: RIVASTIGMINE
     Dosage: 4.6 MG, QD (PATCH 5 (CM2), 9 MG, RIVASTIGMINE BASE)
     Route: 062
  2. RIVASTACH [Suspect]
     Active Substance: RIVASTIGMINE
     Indication: DEMENTIA ALZHEIMER^S TYPE
     Dosage: 1.9 MG, QD (PATCH 2.5 (CM2), 4.5 MG, RIVASTIGMINE BASE)
     Route: 062

REACTIONS (2)
  - Altered state of consciousness [Unknown]
  - Nausea [Unknown]
